FAERS Safety Report 4265034-9 (Version None)
Quarter: 2004Q1

REPORT INFORMATION
  Report Type: 
  Country: None (occurrence: None)
  Receive Date: 20040105
  Receipt Date: 20031224
  Transmission Date: 20041129
  Serious: Yes (Hospitalization)
  Sender: FDA-Public Use
  Company Number: 200310632BNE

PATIENT
  Age: 78 Year
  Sex: Female
  Weight: 67.1 kg

DRUGS (8)
  1. ASPIRIN [Suspect]
     Indication: PERIPHERAL VASCULAR DISORDER
     Dates: end: 20030525
  2. DICLOFENAC SODIUM [Suspect]
     Indication: OSTEOARTHRITIS
     Dosage: ORAL
     Route: 048
     Dates: end: 20030525
  3. ATENOLOL [Concomitant]
  4. ISOSORBIDE MONONITRATE [Concomitant]
  5. CO-PROXAMOL [Concomitant]
  6. PAROXETINE [Concomitant]
  7. NICARDIPINE HCL [Concomitant]
  8. BUMETANIDE [Concomitant]

REACTIONS (1)
  - ANAEMIA [None]
